FAERS Safety Report 4533867-7 (Version None)
Quarter: 2004Q4

REPORT INFORMATION
  Report Type: 
  Country: None (occurrence: None)
  Receive Date: 20041221
  Receipt Date: 20010927
  Transmission Date: 20050328
  Serious: No
  Sender: FDA-Public Use
  Company Number: US-MERCK-01093165

PATIENT
  Age: 73 Year
  Sex: Female
  Weight: 55 kg

DRUGS (9)
  1. FOSAMAX [Suspect]
     Indication: OSTEOPOROSIS
     Route: 048
     Dates: start: 20010601
  2. FOSAMAX [Suspect]
     Route: 048
     Dates: start: 20011101, end: 20041101
  3. FOSAMAX [Suspect]
     Indication: SPINAL DEFORMITY
     Route: 048
     Dates: start: 20010601
  4. FOSAMAX [Suspect]
     Route: 048
     Dates: start: 20011101, end: 20041101
  5. PREMARIN [Concomitant]
     Indication: MENOPAUSE
     Route: 065
  6. NORVASC [Concomitant]
     Indication: HYPERTENSION
     Route: 048
  7. CALCIUM (UNSPECIFIED) [Concomitant]
     Indication: OSTEOPOROSIS
     Route: 048
  8. ASPIRIN [Concomitant]
     Route: 048
  9. VITAMINS (UNSPECIFIED) [Concomitant]
     Indication: VITAMIN SUPPLEMENTATION
     Route: 048

REACTIONS (3)
  - AGEUSIA [None]
  - BACK PAIN [None]
  - BODY HEIGHT DECREASED [None]
